FAERS Safety Report 13585787 (Version 1)
Quarter: 2017Q2

REPORT INFORMATION
  Report Type: Spontaneous
  Country: US (occurrence: US)
  Receive Date: 20170526
  Receipt Date: 20170526
  Transmission Date: 20170830
  Serious: Yes (Other)
  Sender: FDA-Public Use
  Company Number: US-PFIZER INC-2017230577

PATIENT
  Age: 61 Year
  Sex: Female

DRUGS (1)
  1. XELJANZ [Suspect]
     Active Substance: TOFACITINIB CITRATE
     Dosage: 5 MG, UNK

REACTIONS (23)
  - Irritable bowel syndrome [Unknown]
  - Headache [Unknown]
  - Loss of personal independence in daily activities [Unknown]
  - Arthralgia [Unknown]
  - Nausea [Unknown]
  - Insomnia [Unknown]
  - Pain [Unknown]
  - Tenderness [Unknown]
  - Drug intolerance [Unknown]
  - Joint swelling [Unknown]
  - Musculoskeletal stiffness [Unknown]
  - Dry mouth [Unknown]
  - Rheumatoid arthritis [Unknown]
  - Thirst [Unknown]
  - Gout [Unknown]
  - Hypoaesthesia [Unknown]
  - Burning sensation [Unknown]
  - Contusion [Unknown]
  - Paraesthesia [Unknown]
  - Dyspepsia [Unknown]
  - Condition aggravated [Unknown]
  - Fatigue [Unknown]
  - Joint crepitation [Unknown]
